FAERS Safety Report 19674877 (Version 1)
Quarter: 2021Q3

REPORT INFORMATION
  Report Type: Other
  Country: GB (occurrence: GB)
  Receive Date: 20210809
  Receipt Date: 20210809
  Transmission Date: 20211014
  Serious: Yes (Other)
  Sender: FDA-Public Use
  Company Number: GB-HORMOSAN PHARMA GMBH-2021-13721

PATIENT
  Age: 35 Year
  Sex: Female

DRUGS (2)
  1. MAEXENI 150/30 MICROGRAM FILM COATED TABLETS [Suspect]
     Active Substance: ETHINYL ESTRADIOL\LEVONORGESTREL
     Indication: ILL-DEFINED DISORDER
     Dosage: UNK (AS DIRECTED)
     Route: 048
  2. PFIZER?BIONTECH COVID?19 VACCINE [Suspect]
     Active Substance: TOZINAMERAN
     Indication: ILL-DEFINED DISORDER
     Dosage: UNK (VACCINE), 2 DOSES
     Route: 030

REACTIONS (1)
  - Jugular vein thrombosis [Recovering/Resolving]
